FAERS Safety Report 9887155 (Version 2)
Quarter: 2014Q1

REPORT INFORMATION
  Report Type: Spontaneous
  Country: US (occurrence: US)
  Receive Date: 20140211
  Receipt Date: 20140226
  Transmission Date: 20141002
  Serious: Yes (Other)
  Sender: FDA-Public Use
  Company Number: US-BEH-2014040480

PATIENT
  Sex: Female

DRUGS (3)
  1. HIZENTRA [Suspect]
     Indication: IMMUNODEFICIENCY COMMON VARIABLE
  2. METHADONE [Concomitant]
     Indication: BACK PAIN
     Dosage: DAILY
  3. NARCOTIC ANALGESICS [Concomitant]
     Indication: BACK PAIN
     Dosage: DAILY

REACTIONS (5)
  - Sleep apnoea syndrome [Unknown]
  - Unevaluable event [Unknown]
  - Unevaluable event [Unknown]
  - Amnesia [Unknown]
  - Nail disorder [Unknown]
